FAERS Safety Report 5904174-2 (Version None)
Quarter: 2008Q4

REPORT INFORMATION
  Report Type: 
  Country: None (occurrence: None)
  Receive Date: 20081001
  Receipt Date: 20080922
  Transmission Date: 20090506
  Serious: Yes (Hospitalization)
  Sender: FDA-Public Use
  Company Number: DE-TEVA-177754ISR

PATIENT
  Sex: Female

DRUGS (10)
  1. CISPLATIN [Suspect]
     Indication: GASTRIC CANCER
     Route: 042
     Dates: start: 20040211
  2. LEUCOVORIN CALCIUM [Suspect]
     Indication: GASTRIC CANCER
     Route: 042
     Dates: start: 20040211
  3. FLUOROURACIL [Suspect]
     Indication: GASTRIC CANCER
     Route: 042
     Dates: start: 20040211
  4. IRINOTECAN HCL [Suspect]
     Indication: GASTRIC CANCER
     Route: 042
     Dates: start: 20040211
  5. LEVOTHYROXINE SODIUM [Concomitant]
  6. DIPYRONE TAB [Concomitant]
  7. FLUTICASONE PROPIONATE [Concomitant]
  8. FORMOTEROL FUMARATE [Concomitant]
  9. FERROUS GLYCINE SULFATE [Concomitant]
  10. VERAPAMIL HYDROCHLORIDE [Concomitant]

REACTIONS (4)
  - DYSPNOEA [None]
  - GENERAL PHYSICAL HEALTH DETERIORATION [None]
  - PULMONARY EMBOLISM [None]
  - VENOUS THROMBOSIS [None]
